FAERS Safety Report 6884939-3 (Version None)
Quarter: 2010Q3

REPORT INFORMATION
  Report Type: 
  Country: None (occurrence: None)
  Receive Date: 20100729
  Receipt Date: 20071017
  Transmission Date: 20110219
  Serious: Yes (Other)
  Sender: FDA-Public Use
  Company Number: US-PFIZER INC-2007071384

PATIENT
  Sex: Female
  Weight: 77.1 kg

DRUGS (3)
  1. CELEBREX [Suspect]
     Indication: PROCEDURAL PAIN
     Dates: start: 20070713, end: 20070803
  2. CELEBREX [Suspect]
     Indication: SWELLING
  3. ACETAMINOPHEN [Concomitant]

REACTIONS (1)
  - JAUNDICE [None]
